FAERS Safety Report 8842492 (Version 1)
Quarter: 2012Q4

REPORT INFORMATION
  Report Type: 
  Country: KR (occurrence: KR)
  Receive Date: 20121016
  Receipt Date: 20121016
  Transmission Date: 20130627
  Serious: No
  Sender: FDA-Public Use
  Company Number: KR-UCBSA-068618

PATIENT
  Age: 52 Year
  Sex: Female

DRUGS (3)
  1. KEPPRA [Suspect]
     Indication: EPILEPSY
     Route: 042
     Dates: start: 20120919, end: 20121002
  2. KEPPRA [Suspect]
     Indication: EPILEPSY
     Route: 048
     Dates: start: 20121003
  3. NIMODIPINE [Concomitant]
     Dosage: IV/PO
     Dates: start: 201209

REACTIONS (2)
  - Neutropenia [Unknown]
  - Leukopenia [Unknown]
